FAERS Safety Report 16022393 (Version 1)
Quarter: 2019Q2

REPORT INFORMATION
  Report Type: Spontaneous
  Country: US (occurrence: US)
  Receive Date: 20190301
  Receipt Date: 20190301
  Transmission Date: 20190711
  Serious: Yes (Life-Threatening, Hospitalization, Other)
  Sender: FDA-Public Use
  Company Number: None

PATIENT
  Age: 79 Year
  Sex: Male
  Weight: 87.1 kg

DRUGS (20)
  1. AMLODIPINE [Concomitant]
     Active Substance: AMLODIPINE BESYLATE
  2. POTASSIUM CHLORIDE. [Concomitant]
     Active Substance: POTASSIUM CHLORIDE
  3. CARVEDILOL. [Concomitant]
     Active Substance: CARVEDILOL
  4. FINASTERIDE. [Concomitant]
     Active Substance: FINASTERIDE
  5. LANTUS [Concomitant]
     Active Substance: INSULIN GLARGINE
  6. ATORVASTATIN [Concomitant]
     Active Substance: ATORVASTATIN
  7. LORAZEPAM. [Concomitant]
     Active Substance: LORAZEPAM
  8. ASPIRIN. [Concomitant]
     Active Substance: ASPIRIN
  9. TRAZODONE [Concomitant]
     Active Substance: TRAZODONE HYDROCHLORIDE
  10. CLOPIDOGREL [Concomitant]
     Active Substance: CLOPIDOGREL BISULFATE
  11. LISPRO [Concomitant]
     Active Substance: INSULIN LISPRO
  12. PROTRIPTYLINE [Concomitant]
     Active Substance: PROTRIPTYLINE
  13. MIRTAZINEPINE [Concomitant]
  14. BUMETANIDE. [Concomitant]
     Active Substance: BUMETANIDE
  15. SERTRALINE [Concomitant]
     Active Substance: SERTRALINE HYDROCHLORIDE
  16. HEPARIN [Concomitant]
     Active Substance: HEPARIN SODIUM
  17. ISOSORBIDE MONONITRATE. [Concomitant]
     Active Substance: ISOSORBIDE MONONITRATE
  18. TAMSULOSIN [Concomitant]
     Active Substance: TAMSULOSIN
  19. AGGRASTAT [Suspect]
     Active Substance: TIROFIBAN HYDROCHLORIDE
     Indication: ANTICOAGULANT THERAPY
     Dosage: 13.07 UG PER MIN (15.07ML/H; INTRAVENOUS DRIP?
     Route: 041
     Dates: start: 20190224, end: 20190225
  20. FERROUS SULFATE. [Concomitant]
     Active Substance: FERROUS SULFATE

REACTIONS (5)
  - Platelet count decreased [None]
  - Faeces discoloured [None]
  - Haematochezia [None]
  - Haemoglobin decreased [None]
  - Abdominal pain [None]

NARRATIVE: CASE EVENT DATE: 20190225
